FAERS Safety Report 9917498 (Version 1)
Quarter: 2014Q1

REPORT INFORMATION
  Report Type: Spontaneous
  Country: NL (occurrence: NL)
  Receive Date: 20140221
  Receipt Date: 20140221
  Transmission Date: 20141002
  Serious: Yes (Other)
  Sender: FDA-Public Use
  Company Number: ALCN2014NL001192

PATIENT
  Age: 69 Year
  Sex: Male

DRUGS (2)
  1. TOBREX B.I.D. [Suspect]
     Dosage: 1 GTT, BID
     Route: 047
     Dates: start: 20130626, end: 20130707
  2. TAMSULOSINE [Concomitant]
     Dosage: 1 CAPSULE, QD
     Dates: start: 20051221

REACTIONS (2)
  - Ulcerative keratitis [Recovered/Resolved]
  - Eye swelling [Recovered/Resolved]
